FAERS Safety Report 16891377 (Version 1)
Quarter: 2019Q4

REPORT INFORMATION
  Report Type: Spontaneous
  Country: US (occurrence: US)
  Receive Date: 20190812
  Receipt Date: 20190812
  Transmission Date: 20200122
  Serious: Yes (Hospitalization)
  Sender: FDA-Public Use
  Company Number: None

PATIENT
  Age: 58 Year
  Sex: Male

DRUGS (1)
  1. ATORVASTATIN [Suspect]
     Active Substance: ATORVASTATIN
     Dates: start: 20181104

REACTIONS (3)
  - Peripheral swelling [None]
  - Swelling face [None]
  - Swelling [None]

NARRATIVE: CASE EVENT DATE: 20181104
